FAERS Safety Report 6042654-2 (Version None)
Quarter: 2009Q1

REPORT INFORMATION
  Report Type: 
  Country: None (occurrence: None)
  Receive Date: 20090119
  Receipt Date: 20090109
  Transmission Date: 20090719
  Serious: Yes (Other)
  Sender: FDA-Public Use
  Company Number: PHHY2009CH00822

PATIENT
  Age: 41 Year
  Sex: Female

DRUGS (3)
  1. RITALIN [Suspect]
     Indication: PSYCHOMOTOR HYPERACTIVITY
     Dosage: 40 MG/DAY
  2. RITALIN [Suspect]
     Dosage: 10 MG/DAY
     Dates: start: 20080920, end: 20081209
  3. RITALIN-SR [Suspect]
     Indication: PSYCHOMOTOR HYPERACTIVITY
     Dosage: 20 MG/DAY
     Dates: start: 20080920, end: 20081209

REACTIONS (6)
  - ABNORMAL BEHAVIOUR [None]
  - AGGRESSION [None]
  - AGITATION [None]
  - DRUG WITHDRAWAL SYNDROME [None]
  - REBOUND EFFECT [None]
  - ROAD TRAFFIC ACCIDENT [None]
